FAERS Safety Report 19001627 (Version 2)
Quarter: 2021Q2

REPORT INFORMATION
  Report Type: Spontaneous
  Country: US (occurrence: US)
  Receive Date: 20210312
  Receipt Date: 20210503
  Transmission Date: 20210717
  Serious: No
  Sender: FDA-Public Use
  Company Number: US-FARMAPROD-202011-1504

PATIENT
  Age: 65 Year
  Sex: Female

DRUGS (3)
  1. OXERVATE [Suspect]
     Active Substance: CENEGERMIN-BKBJ
     Route: 047
     Dates: start: 20210104
  2. OXERVATE [Suspect]
     Active Substance: CENEGERMIN-BKBJ
     Indication: NEUROTROPHIC KERATOPATHY
     Route: 047
     Dates: start: 20201030
  3. ENBREL [Concomitant]
     Active Substance: ETANERCEPT

REACTIONS (17)
  - Diarrhoea [Not Recovered/Not Resolved]
  - Accidental overdose [Unknown]
  - Rash [Recovering/Resolving]
  - Hypoaesthesia oral [Not Recovered/Not Resolved]
  - Ocular discomfort [Not Recovered/Not Resolved]
  - Gait disturbance [Unknown]
  - Paraesthesia oral [Not Recovered/Not Resolved]
  - Eye pain [Not Recovered/Not Resolved]
  - Nausea [Not Recovered/Not Resolved]
  - Lethargy [Not Recovered/Not Resolved]
  - Eye swelling [Not Recovered/Not Resolved]
  - Product dose omission issue [Recovered/Resolved]
  - Headache [Not Recovered/Not Resolved]
  - Urticaria [Recovering/Resolving]
  - Product administration error [Recovered/Resolved]
  - Off label use [Unknown]
  - Fatigue [Unknown]

NARRATIVE: CASE EVENT DATE: 20201108
